FAERS Safety Report 16563855 (Version 1)
Quarter: 2019Q3

REPORT INFORMATION
  Report Type: Spontaneous
  Country: DE (occurrence: DE)
  Receive Date: 20190712
  Receipt Date: 20190712
  Transmission Date: 20191004
  Serious: Yes (Life-Threatening, Hospitalization)
  Sender: FDA-Public Use
  Company Number: DE-009507513-1907DEU004053

PATIENT
  Age: 67 Year
  Sex: Female

DRUGS (17)
  1. ATORVASTATIN [Concomitant]
     Active Substance: ATORVASTATIN
     Dosage: 20 MG, 0-0-1-0 (ONE IN THE EVENING), TABLETS
     Route: 048
  2. APIDRA [Suspect]
     Active Substance: INSULIN GLULISINE
     Dosage: 100 I.U./ML, BLOOD SUGAR, SOLUTION FOR INJECTION/INFUSION
     Route: 058
  3. LANTUS [Suspect]
     Active Substance: INSULIN GLARGINE
     Dosage: 100 I.U./ML SOLOSTAR 3ML, 1 I.U.,10-0-14-0 (10 IN THE MORNING, 14 IN THE EVENING), SOLUTION FOR INJE
     Route: 058
  4. L-THYROXIN HENNING [Concomitant]
     Active Substance: LEVOTHYROXINE SODIUM
     Dosage: 75 MCG, 1-0-0-0 (ONE TABLET IN THE MORNING)
     Route: 048
  5. EXFORGE HCT [Concomitant]
     Active Substance: AMLODIPINE BESYLATE\HYDROCHLOROTHIAZIDE\VALSARTAN
     Dosage: 160/5/12.5 MG, 1-0-1-0 (ONE IN THE MORNING, ONE IN THE EVENING), TABLETS
     Route: 048
  6. CALCITRIOL. [Concomitant]
     Active Substance: CALCITRIOL
     Dosage: 0.5 MCG, 1-0-0-0 (ONE CAPSULE IN THE MORNING)
     Route: 048
  7. ZOPICLONE [Concomitant]
     Active Substance: ZOPICLONE
     Dosage: 7.5 MG, 0-0-0-0.5, TABLETS
     Route: 048
  8. NEBIVOLOL. [Concomitant]
     Active Substance: NEBIVOLOL
     Dosage: 5 MG, 1-0-1-0 (ONE IN THE MORNING, ONE IN THE EVENING), TABLETS
     Route: 048
  9. ULTIBRO BREEZEHALER [Concomitant]
     Active Substance: GLYCOPYRRONIUM\INDACATEROL
     Dosage: 85/43MCG, 1-0-0-0 (ONE CAPSULE IN THE MORNING)
     Route: 055
  10. NOVAMINSULFON 1A PHARMA [Concomitant]
     Active Substance: METAMIZOLE SODIUM
     Dosage: 500 MG, 1-1-1-1 (ONE TABLET 4 TIMES A DAY)
     Route: 048
  11. JANUVIA [Suspect]
     Active Substance: SITAGLIPTIN PHOSPHATE
     Dosage: 25 MG, 0-1-0-0 (ONE TABLET AT THE AFTERNOON)
     Route: 048
  12. LORA ADGC [Concomitant]
     Dosage: 10 MG, 1-0-0-0 (ONE TABLET IN THE MORNING)
     Route: 048
  13. ASS RATIOPHARM [Concomitant]
     Active Substance: ASPIRIN
     Dosage: 100 MG, 1-0-0-0 (ONE TABLET IN THE MORNING)
     Route: 048
  14. TORASEMID ACTAVIS [Concomitant]
     Active Substance: TORSEMIDE
     Dosage: 10 MG, 2-0-0-0 (TWO IN THE MORNING),TABLETS
     Route: 048
  15. FENTANYL. [Concomitant]
     Active Substance: FENTANYL
     Dosage: 37.5 MICROGRAM, SCHEME, PLASTER TRANSDERMAL
     Route: 062
  16. PANTOPRAZOLE [Concomitant]
     Active Substance: PANTOPRAZOLE
     Dosage: 40 MG, 1-0-1-0 (ONE IN THE MORNING, ONE IN THE EVENING),TABLETS
     Route: 048
  17. CIPRAMIL [Concomitant]
     Dosage: 40 MG, 1-0-0-0 (ONE TABLET IN THE MORNING)
     Route: 048

REACTIONS (9)
  - Epigastric discomfort [Unknown]
  - Loss of consciousness [Unknown]
  - Hypoglycaemia [Unknown]
  - Diabetic coma [Unknown]
  - Accidental overdose [Unknown]
  - Dyspnoea [Unknown]
  - Weight increased [Unknown]
  - Haematoma [Unknown]
  - General physical health deterioration [Unknown]
